FAERS Safety Report 15342785 (Version 1)
Quarter: 2018Q4

REPORT INFORMATION
  Report Type: Spontaneous
  Country: US (occurrence: US)
  Receive Date: 20180903
  Receipt Date: 20180903
  Transmission Date: 20190204
  Serious: No
  Sender: FDA-Public Use
  Company Number: US-LEO PHARMA-310666

PATIENT
  Age: 64 Year
  Sex: Male
  Weight: 136.1 kg

DRUGS (5)
  1. CALCIPOTRIENE OINTMENT 0.005% [Suspect]
     Active Substance: CALCIPOTRIENE
     Indication: PSORIASIS
     Dosage: UNK
     Route: 061
  2. CLOBETASOL PROPIONATE CREAM 0.5% [Suspect]
     Active Substance: CLOBETASOL PROPIONATE
     Indication: PSORIASIS
     Dosage: UNK
     Route: 061
  3. FLUOCINONIDE TOPICAL SOLUTION USP 0.05% [Suspect]
     Active Substance: FLUOCINONIDE
     Indication: PSORIASIS
     Dosage: UNK
     Route: 061
  4. FLUOCINONIDE CREAM USP 0.05% [Suspect]
     Active Substance: FLUOCINONIDE
     Indication: PSORIASIS
     Dosage: UNK
     Route: 061
  5. CLOBETASOL PROPIONATE OINTMENT 0.5% [Suspect]
     Active Substance: CLOBETASOL PROPIONATE
     Indication: PSORIASIS
     Dosage: UNK
     Route: 061

REACTIONS (3)
  - Myasthenia gravis [Unknown]
  - Product dose omission [Unknown]
  - Psoriasis [Unknown]
